FAERS Safety Report 8263939-5 (Version None)
Quarter: 2012Q2

REPORT INFORMATION
  Report Type: 
  Country: None (occurrence: None)
  Receive Date: 20120406
  Receipt Date: 20120329
  Transmission Date: 20120825
  Serious: Yes (Hospitalization)
  Sender: FDA-Public Use
  Company Number: US-BIOGENIDEC-2012BI007596

PATIENT
  Age: 45 Year
  Sex: Female

DRUGS (3)
  1. BENICAR [Concomitant]
     Indication: HYPERTENSION
  2. TYSABRI [Suspect]
     Indication: MULTIPLE SCLEROSIS
     Route: 042
     Dates: start: 20070117, end: 20120116
  3. SIMVASTATIN [Concomitant]
     Indication: HYPERLIPIDAEMIA

REACTIONS (6)
  - URTICARIA [None]
  - ANXIETY [None]
  - LARYNGEAL INFLAMMATION [None]
  - IMMUNE RECONSTITUTION SYNDROME [None]
  - DEPRESSION [None]
  - PROGRESSIVE MULTIFOCAL LEUKOENCEPHALOPATHY [None]
